FAERS Safety Report 17566208 (Version 1)
Quarter: 2020Q1

REPORT INFORMATION
  Report Type: Spontaneous
  Country: US (occurrence: US)
  Receive Date: 20200320
  Receipt Date: 20200320
  Transmission Date: 20200409
  Serious: Yes (Death)
  Sender: FDA-Public Use
  Company Number: None

PATIENT
  Age: 78 Year
  Sex: Male
  Weight: 65.16 kg

DRUGS (10)
  1. NEULASTA ONPRO 6MG/0.6 ML [Concomitant]
     Dates: start: 20190521, end: 20190605
  2. RITUXIN 500 MG /50ML [Concomitant]
     Dates: start: 20190521, end: 20190605
  3. DIPHENHYDRAMINE 50ML/ML [Concomitant]
     Dates: start: 20190521, end: 20190605
  4. LUPRON DEPOT [Suspect]
     Active Substance: LEUPROLIDE ACETATE
     Indication: PLASMA CELL MYELOMA
     Dosage: ?          OTHER FREQUENCY:EVERY 3 MONTHS;?
     Route: 030
     Dates: start: 20190605, end: 20200320
  5. ONDANSETRON 4MG / 2ML [Concomitant]
     Dates: start: 20190521, end: 20190521
  6. FAMOTIDINE 20 MG/50 ML [Concomitant]
     Dates: start: 20190521, end: 20190521
  7. CYCLOPHOSPHAMIDE 1000 MG [Concomitant]
     Dates: start: 20190521, end: 20190605
  8. RITUXIN 100 MG /10ML [Concomitant]
     Dates: start: 20190521, end: 20190605
  9. PREDNISONE 50 MG [Concomitant]
     Active Substance: PREDNISONE
     Dates: start: 20190521, end: 20190605
  10. VINCRISTINE 2MG/2ML [Concomitant]
     Active Substance: VINCRISTINE
     Dates: start: 20190521, end: 20190605

REACTIONS (1)
  - Drug ineffective [None]

NARRATIVE: CASE EVENT DATE: 20200121
